FAERS Safety Report 16810537 (Version 1)
Quarter: 2019Q3

REPORT INFORMATION
  Report Type: Spontaneous
  Country: US (occurrence: US)
  Receive Date: 20190916
  Receipt Date: 20190916
  Transmission Date: 20191005
  Serious: No
  Sender: FDA-Public Use
  Company Number: US-BAYER-2019-169297

PATIENT

DRUGS (1)
  1. GADAVIST [Suspect]
     Active Substance: GADOBUTROL
     Dosage: 7.5 ML, ONCE
     Route: 058
     Dates: start: 20190912, end: 20190912

REACTIONS (1)
  - Malaise [None]

NARRATIVE: CASE EVENT DATE: 20190912
